FAERS Safety Report 6804139-2 (Version None)
Quarter: 2010Q2

REPORT INFORMATION
  Report Type: 
  Country: None (occurrence: None)
  Receive Date: 20100628
  Receipt Date: 20070402
  Transmission Date: 20101027
  Serious: No
  Sender: FDA-Public Use
  Company Number: US-PFIZER INC-2005137022

PATIENT
  Sex: Male
  Weight: 73.94 kg

DRUGS (12)
  1. XALATAN [Suspect]
     Indication: GLAUCOMA
     Dosage: 1 DROP IN EACH EYE
     Route: 047
     Dates: end: 20050927
  2. LUMIGAN [Suspect]
     Indication: ILL-DEFINED DISORDER
     Route: 065
  3. ALPHAGAN [Suspect]
     Indication: ILL-DEFINED DISORDER
     Route: 065
  4. TIMOLOL MALEATE [Suspect]
     Indication: ILL-DEFINED DISORDER
     Route: 065
  5. ACETYLSALICYLIC ACID [Concomitant]
     Route: 065
  6. HYDROCHLOROTHIAZIDE [Concomitant]
     Route: 065
  7. SAW PALMETTO [Concomitant]
     Route: 065
  8. PYGEUM AFRICANUM [Concomitant]
     Route: 065
  9. SYNTHROID [Concomitant]
     Route: 065
  10. MULTI-VITAMINS [Concomitant]
     Route: 065
  11. COSOPT [Concomitant]
  12. TRUSOPT [Concomitant]

REACTIONS (8)
  - BLOOD PRESSURE FLUCTUATION [None]
  - BLOOD THYROID STIMULATING HORMONE INCREASED [None]
  - EYE PAIN [None]
  - HYPERAEMIA [None]
  - INTRAOCULAR PRESSURE INCREASED [None]
  - LACRIMATION INCREASED [None]
  - PRURITUS [None]
  - VISUAL IMPAIRMENT [None]
